FAERS Safety Report 5775499-9 (Version None)
Quarter: 2008Q2

REPORT INFORMATION
  Report Type: 
  Country: None (occurrence: None)
  Receive Date: 20080617
  Receipt Date: 20080523
  Transmission Date: 20081010
  Serious: Yes (Hospitalization, Other)
  Sender: FDA-Public Use
  Company Number: PHHY2008CA08920

PATIENT
  Sex: Male
  Weight: 83.2 kg

DRUGS (19)
  1. GLEEVEC [Suspect]
     Indication: CHRONIC MYELOID LEUKAEMIA
     Dosage: 800 MG, QD
     Route: 048
     Dates: start: 20050101
  2. HYDREA [Concomitant]
     Dosage: 1 G, BID
     Dates: start: 20050901
  3. ATENOLOL [Concomitant]
     Dosage: 25 MG, QD
     Route: 048
     Dates: start: 20050101
  4. FLUID/ELECTROLYTE REPLACEMENT THERAPY [Concomitant]
  5. ALBUMIN [Concomitant]
  6. ANAGRELIDE HCL [Concomitant]
     Dosage: 1 MG, BID
     Dates: start: 20050901
  7. INNOHEP [Concomitant]
     Dosage: 5000 U, QD
     Route: 058
     Dates: start: 20050901
  8. ASPIRIN [Concomitant]
     Dosage: 81 MG, QD
     Dates: start: 20050901
  9. ALLOPURINOL [Concomitant]
     Dosage: 150 MG, QD
     Dates: start: 20050901
  10. CHOLESTYRAMINE [Concomitant]
     Dosage: 1/2 PACKAGE DAILY
  11. RABEPRAZOLE SODIUM [Concomitant]
     Dosage: 20 MG, QD
     Dates: start: 20050901
  12. LOMOTIL [Concomitant]
     Dosage: 2 MG, BID
  13. VITAMIN B-12 [Concomitant]
     Dosage: 1000 UG, QMO
     Dates: start: 20050901
  14. DEMEROL [Concomitant]
     Indication: PAIN
     Dosage: 50 MG, UNK
     Route: 048
     Dates: start: 20050901
  15. DEMEROL [Concomitant]
     Dosage: 100 MG, UNK
     Route: 048
  16. ASCORBIC ACID [Concomitant]
  17. TYLENOL [Concomitant]
     Indication: CLUSTER HEADACHE
     Dosage: UNK
     Dates: start: 20050101
  18. GRAVOL TAB [Concomitant]
     Dosage: 25 MG, Q6H
     Dates: start: 20050901
  19. GRAVOL TAB [Concomitant]
     Dosage: 50 MG, Q6H

REACTIONS (27)
  - ABSCESS DRAINAGE [None]
  - ABSCESS INTESTINAL [None]
  - BIOPSY BONE MARROW ABNORMAL [None]
  - BIOPSY LIVER ABNORMAL [None]
  - CACHEXIA [None]
  - CATHETER RELATED COMPLICATION [None]
  - CHLOROMA [None]
  - CHOLANGITIS SCLEROSING [None]
  - CHRONIC MYELOID LEUKAEMIA [None]
  - CONNECTIVE TISSUE DISORDER [None]
  - DEHYDRATION [None]
  - FISTULA [None]
  - HEART RATE INCREASED [None]
  - HYPOALBUMINAEMIA [None]
  - HYPOTENSION [None]
  - ILEOSTOMY [None]
  - INCISION SITE COMPLICATION [None]
  - INCISIONAL HERNIA REPAIR [None]
  - JAUNDICE [None]
  - LAPAROTOMY [None]
  - MUSCLE ATROPHY [None]
  - OEDEMA PERIPHERAL [None]
  - PURULENT DISCHARGE [None]
  - SEPSIS [None]
  - SHORT-BOWEL SYNDROME [None]
  - THROMBOCYTHAEMIA [None]
  - WEIGHT DECREASED [None]
